FAERS Safety Report 7376093-9 (Version None)
Quarter: 2011Q1

REPORT INFORMATION
  Report Type: 
  Country: None (occurrence: None)
  Receive Date: 20110325
  Receipt Date: 20110318
  Transmission Date: 20110831
  Serious: Yes (Other)
  Sender: FDA-Public Use
  Company Number: RU-BRISTOL-MYERS SQUIBB COMPANY-15621154

PATIENT
  Age: 82 Year
  Sex: Female

DRUGS (1)
  1. SAXAGLIPTIN [Suspect]

REACTIONS (1)
  - CEREBROVASCULAR ACCIDENT [None]
